FAERS Safety Report 12587326 (Version 1)
Quarter: 2016Q3

REPORT INFORMATION
  Report Type: Spontaneous
  Country: FR (occurrence: FR)
  Receive Date: 20160725
  Receipt Date: 20160725
  Transmission Date: 20161109
  Serious: Yes (Hospitalization)
  Sender: FDA-Public Use
  Company Number: FR-ROCHE-1800388

PATIENT
  Age: 56 Year
  Sex: Male

DRUGS (6)
  1. ROCEPHINE [Suspect]
     Active Substance: CEFTRIAXONE SODIUM
     Indication: PNEUMONIA
     Route: 042
     Dates: start: 20160623, end: 20160701
  2. ROVAMYCINE [Suspect]
     Active Substance: SPIRAMYCIN
     Indication: PNEUMONIA
     Dosage: 1.5 MILLION OF IU, LYOPHILISATE FOR PARENTERAL USE
     Route: 042
     Dates: start: 20160623, end: 20160630
  3. FLAGYL [Suspect]
     Active Substance: METRONIDAZOLE\METRONIDAZOLE HYDROCHLORIDE
     Indication: PNEUMONIA
     Dosage: COATED TABLET, 500MG
     Route: 048
     Dates: start: 20160623, end: 20160630
  4. ZYVOXID [Suspect]
     Active Substance: LINEZOLID
     Indication: PRODUCT USED FOR UNKNOWN INDICATION
     Dosage: 600MG, COATED TABLET
     Route: 048
     Dates: start: 20160626, end: 20160630
  5. WELLVONE [Suspect]
     Active Substance: ATOVAQUONE
     Indication: PARASITIC INFECTION PROPHYLAXIS
     Dosage: 750MG/5ML, DRINKABLE SUSPENSION IN PACKS
     Route: 065
     Dates: start: 20160623, end: 20160704
  6. COLCHICINE. [Suspect]
     Active Substance: COLCHICINE
     Indication: GOUT
     Dosage: 1MG
     Route: 048
     Dates: start: 20160628, end: 20160630

REACTIONS (2)
  - Mouth ulceration [Recovering/Resolving]
  - Rash [Recovering/Resolving]

NARRATIVE: CASE EVENT DATE: 20160629
